FAERS Safety Report 23371669 (Version 1)
Quarter: 2024Q1

REPORT INFORMATION
  Report Type: Report from Study
  Country: CN (occurrence: CN)
  Receive Date: 20240105
  Receipt Date: 20240105
  Transmission Date: 20240410
  Serious: Yes (Hospitalization)
  Sender: FDA-Public Use
  Company Number: CN-Eisai Medical Research-EC-2023-148867

PATIENT
  Age: 74 Year
  Sex: Male
  Weight: 61.5 kg

DRUGS (8)
  1. LENVATINIB [Suspect]
     Active Substance: LENVATINIB
     Indication: Hepatic cancer
     Route: 048
     Dates: start: 20200811, end: 20201201
  2. LENVATINIB [Suspect]
     Active Substance: LENVATINIB
     Route: 048
     Dates: start: 20201210
  3. TORIPALIMAB [Suspect]
     Active Substance: TORIPALIMAB
     Indication: Hepatic cancer
     Route: 042
     Dates: start: 20200825, end: 20201130
  4. TORIPALIMAB [Suspect]
     Active Substance: TORIPALIMAB
     Route: 042
     Dates: start: 20201210
  5. POTASSIUM CHLORIDE [Concomitant]
     Active Substance: POTASSIUM CHLORIDE
     Dates: start: 20200801
  6. ENTECAVIR [Concomitant]
     Active Substance: ENTECAVIR
     Dates: start: 20200701
  7. EUCALYPTUS GLYCYRRHIZINATE [Concomitant]
     Dates: start: 20200701
  8. NIFEDIPINE [Concomitant]
     Active Substance: NIFEDIPINE

REACTIONS (1)
  - Hyponatraemia [Recovering/Resolving]

NARRATIVE: CASE EVENT DATE: 20201204
